FAERS Safety Report 22339861 (Version 2)
Quarter: 2023Q2

REPORT INFORMATION
  Report Type: Spontaneous
  Country: US (occurrence: US)
  Receive Date: 20230518
  Receipt Date: 20230531
  Transmission Date: 20230722
  Serious: No
  Sender: FDA-Public Use
  Company Number: US-BIOGEN-2023BI01205607

PATIENT
  Sex: Male

DRUGS (1)
  1. TECFIDERA [Suspect]
     Active Substance: DIMETHYL FUMARATE
     Indication: Multiple sclerosis
     Route: 050

REACTIONS (5)
  - Nervousness [Recovered/Resolved]
  - Gait disturbance [Recovered/Resolved]
  - Nausea [Recovered/Resolved]
  - Burning sensation [Recovered/Resolved]
  - Feeling hot [Recovered/Resolved]
